FAERS Safety Report 20030594 (Version 1)
Quarter: 2021Q4

REPORT INFORMATION
  Report Type: Spontaneous
  Country: US (occurrence: None)
  Receive Date: 20211103
  Receipt Date: 20211103
  Transmission Date: 20220303
  Serious: No
  Sender: FDA-Public Use
  Company Number: US-Merck Healthcare KGaA-9271097

PATIENT
  Sex: Male

DRUGS (1)
  1. AVELUMAB [Suspect]
     Active Substance: AVELUMAB
     Indication: Colitis ulcerative
     Route: 042

REACTIONS (2)
  - Infusion related reaction [Unknown]
  - Off label use [Unknown]
